FAERS Safety Report 9429778 (Version 1)
Quarter: 2013Q3

REPORT INFORMATION
  Report Type: Report from Study
  Country: US (occurrence: US)
  Receive Date: 20130730
  Receipt Date: 20130730
  Transmission Date: 20140515
  Serious: No
  Sender: FDA-Public Use
  Company Number: US-ABBOTT-13P-163-1069295-00

PATIENT
  Sex: Female

DRUGS (9)
  1. NIASPAN (COATED) [Suspect]
     Indication: BLOOD CHOLESTEROL INCREASED
     Dates: end: 201211
  2. NIASPAN (COATED) [Suspect]
     Indication: DIABETES MELLITUS
  3. NIASPAN (COATED) [Suspect]
     Indication: PROPHYLAXIS
  4. SIMVASTATIN [Concomitant]
     Indication: PRODUCT USED FOR UNKNOWN INDICATION
  5. NOVOLOG [Concomitant]
     Indication: PRODUCT USED FOR UNKNOWN INDICATION
  6. LISINOPRIL [Concomitant]
     Indication: PRODUCT USED FOR UNKNOWN INDICATION
  7. LANTUS INSULIN [Concomitant]
     Indication: PRODUCT USED FOR UNKNOWN INDICATION
  8. LETADINE [Concomitant]
     Indication: FLATULENCE
  9. LETADINE [Concomitant]
     Indication: DYSPEPSIA

REACTIONS (2)
  - Flushing [Recovered/Resolved]
  - Burning sensation [Recovered/Resolved]
